FAERS Safety Report 10889723 (Version 1)
Quarter: 2015Q1

REPORT INFORMATION
  Report Type: Report from Study
  Country: DE (occurrence: DE)
  Receive Date: 20150306
  Receipt Date: 20150306
  Transmission Date: 20150721
  Serious: Yes (Hospitalization, Other)
  Sender: FDA-Public Use
  Company Number: DE-ROCHE-1271497

PATIENT
  Age: 60 Year
  Sex: Female
  Weight: 47 kg

DRUGS (3)
  1. PACLITAXEL. [Concomitant]
     Active Substance: PACLITAXEL
     Indication: OVARIAN CANCER
     Route: 042
     Dates: start: 20120404, end: 20120606
  2. BEVACIZUMAB [Suspect]
     Active Substance: BEVACIZUMAB
     Indication: OVARIAN CANCER
     Dosage: UNIT DOSE OF 15 MG/KG IS EQUIVALENT TO 705 MG. LAST DOSE PRIOR TO SAE ON 02/JUL/2013
     Route: 042
     Dates: start: 20120404, end: 20130702
  3. CARBOPLATIN. [Concomitant]
     Active Substance: CARBOPLATIN
     Indication: OVARIAN CANCER
     Route: 042
     Dates: start: 20120404, end: 20120606

REACTIONS (5)
  - Ileus [Recovered/Resolved]
  - Neoplasm [Recovered/Resolved]
  - Neoplasm malignant [Recovered/Resolved]
  - Benign neoplasm [Recovered/Resolved]
  - Malignant neoplasm progression [Unknown]

NARRATIVE: CASE EVENT DATE: 20130715
